FAERS Safety Report 9554604 (Version 2)
Quarter: 2013Q4

REPORT INFORMATION
  Report Type: Spontaneous
  Country: PE (occurrence: PE)
  Receive Date: 20130925
  Receipt Date: 20131010
  Transmission Date: 20140711
  Serious: Yes (Hospitalization, Other)
  Sender: FDA-Public Use
  Company Number: PE-AMGEN-PERSP2013067377

PATIENT
  Age: 34 Year
  Sex: Female

DRUGS (5)
  1. ENBREL [Suspect]
     Indication: RHEUMATOID ARTHRITIS
     Dosage: UNK
     Route: 058
  2. ENBREL [Suspect]
     Dosage: UNK
     Route: 058
     Dates: start: 201308
  3. ENBREL [Suspect]
     Dosage: UNK
     Route: 058
     Dates: start: 201010, end: 201305
  4. ENBREL [Suspect]
     Dosage: UNK
     Route: 058
     Dates: start: 201307, end: 201308
  5. METHOTREXATE [Concomitant]
     Dosage: UNK
     Route: 048

REACTIONS (4)
  - Malaise [Unknown]
  - Haemoglobin decreased [Unknown]
  - Joint swelling [Not Recovered/Not Resolved]
  - Brucellosis [Recovered/Resolved]
